FAERS Safety Report 8352511-4 (Version None)
Quarter: 2012Q2

REPORT INFORMATION
  Report Type: 
  Country: None (occurrence: None)
  Receive Date: 20120511
  Receipt Date: 20120507
  Transmission Date: 20120825
  Serious: Yes (Other)
  Sender: FDA-Public Use
  Company Number: CN-ASTRAZENECA-2012SE28157

PATIENT
  Age: 78 Month
  Sex: Male
  Weight: 20 kg

DRUGS (4)
  1. ATROPINE [Suspect]
     Route: 030
  2. PROMETHAZINE [Suspect]
     Route: 030
  3. PROPOFOL [Suspect]
     Indication: GENERAL ANAESTHESIA
     Route: 042
  4. ATRACURIUM [Suspect]

REACTIONS (8)
  - LARYNGEAL OEDEMA [None]
  - STRIDOR [None]
  - ERYTHEMA [None]
  - HEART RATE INCREASED [None]
  - DEPRESSION [None]
  - DYSPNOEA [None]
  - OXYGEN SATURATION DECREASED [None]
  - BLOOD PRESSURE DECREASED [None]
